FAERS Safety Report 24589434 (Version 1)
Quarter: 2024Q4

REPORT INFORMATION
  Report Type: Spontaneous
  Country: US (occurrence: None)
  Receive Date: 20241106
  Receipt Date: 20241106
  Transmission Date: 20250115
  Serious: No
  Sender: Public
  Company Number: None

PATIENT
  Age: 52 Year
  Sex: Female

DRUGS (1)
  1. KISQALI [Suspect]
     Active Substance: RIBOCICLIB
     Dosage: FREQUENCY : DAILY;?
     Route: 048

REACTIONS (3)
  - Vision blurred [None]
  - Lacrimation increased [None]
  - Visual impairment [None]
